FAERS Safety Report 11235151 (Version 1)
Quarter: 2015Q3

REPORT INFORMATION
  Report Type: Spontaneous
  Country: CN (occurrence: CN)
  Receive Date: 20150702
  Receipt Date: 20150702
  Transmission Date: 20151125
  Serious: Yes (Other)
  Sender: FDA-Public Use
  Company Number: PHHY2015CN077672

PATIENT
  Age: 61 Year
  Sex: Male

DRUGS (4)
  1. LEUCOVORIN CALCIUM. [Suspect]
     Active Substance: LEUCOVORIN CALCIUM
     Indication: HEPATIC CANCER
     Dosage: 200 MG/M2, UNK
     Route: 042
     Dates: start: 20121205, end: 20130708
  2. OXALIPLATIN. [Suspect]
     Active Substance: OXALIPLATIN
     Indication: HEPATIC CANCER
     Dosage: 85 MG/M2, UNK
     Route: 042
     Dates: start: 20121205, end: 20130708
  3. 5-FLUOROURACIL [Suspect]
     Active Substance: FLUOROURACIL
     Dosage: 600 MG/M2, UNK
     Route: 042
     Dates: start: 20121205, end: 20130708
  4. 5-FLUOROURACIL [Suspect]
     Active Substance: FLUOROURACIL
     Indication: HEPATIC CANCER
     Dosage: 400 MG/M2, UNK
     Route: 040
     Dates: start: 20121205, end: 20130708

REACTIONS (1)
  - Hepatitis B [Recovering/Resolving]
